FAERS Safety Report 4482453-6 (Version None)
Quarter: 2004Q4

REPORT INFORMATION
  Report Type: 
  Country: None (occurrence: None)
  Receive Date: 20041022
  Receipt Date: 20041012
  Transmission Date: 20050328
  Serious: Yes (Other)
  Sender: FDA-Public Use
  Company Number: DEWYE060723SEP04

PATIENT
  Sex: Female
  Weight: 103 kg

DRUGS (11)
  1. ENBREL [Suspect]
     Indication: ANKYLOSING SPONDYLITIS
     Route: 058
     Dates: start: 20020401
  2. DICLOFENAC SODIUM [Suspect]
  3. PREDNISOLONE [Suspect]
  4. FELODIPINE [Suspect]
  5. BISOPROLOL FUMARATE [Suspect]
     Dosage: 10MG/25MG HALF A TABLET THE DAY
  6. CALCIUM CARBONATE [Suspect]
     Dosage: ONE TABLET PER DAY
  7. OMEPRAZOLE [Suspect]
  8. TORSEMIDE [Suspect]
  9. FOSAMAX [Suspect]
  10. AEQUAMEN [Suspect]
  11. METHOTREXATE [Suspect]
     Dosage: UNKNOWN

REACTIONS (4)
  - CONDITION AGGRAVATED [None]
  - DRUG INTERACTION [None]
  - HEPATIC ENZYME INCREASED [None]
  - RHEUMATOID ARTHRITIS [None]
